FAERS Safety Report 6075267-7 (Version None)
Quarter: 2009Q1

REPORT INFORMATION
  Report Type: 
  Country: None (occurrence: None)
  Receive Date: 20090212
  Receipt Date: 20090204
  Transmission Date: 20090719
  Serious: Yes (Other)
  Sender: FDA-Public Use
  Company Number: PHHY2009AU02391

PATIENT
  Age: 65 Year
  Sex: Female

DRUGS (1)
  1. FEMARA [Suspect]
     Indication: BREAST CANCER
     Dosage: 2.5 MG, QD AT NIGHT
     Route: 048
     Dates: start: 20081103, end: 20090129

REACTIONS (7)
  - ABASIA [None]
  - BONE PAIN [None]
  - HYPERHIDROSIS [None]
  - NIGHTMARE [None]
  - OEDEMA PERIPHERAL [None]
  - PAIN IN EXTREMITY [None]
  - PARAESTHESIA [None]
